FAERS Safety Report 13532483 (Version 4)
Quarter: 2017Q4

REPORT INFORMATION
  Report Type: Report from Study
  Country: US (occurrence: US)
  Receive Date: 20170510
  Receipt Date: 20171031
  Transmission Date: 20180320
  Serious: No
  Sender: FDA-Public Use
  Company Number: PHEH2017US013937

PATIENT
  Age: 2 Year
  Sex: Female

DRUGS (4)
  1. ILARIS [Suspect]
     Active Substance: CANAKINUMAB
     Dosage: UNK EVERY 4 WEEKS
     Route: 065
     Dates: start: 20170321
  2. ILARIS [Suspect]
     Active Substance: CANAKINUMAB
     Indication: PRODUCT USED FOR UNKNOWN INDICATION
     Dosage: UNK
     Route: 065
  3. ILARIS [Suspect]
     Active Substance: CANAKINUMAB
     Dosage: UNK EVERY 4 WEEKS
     Route: 065
     Dates: start: 20170501
  4. ILARIS [Suspect]
     Active Substance: CANAKINUMAB
     Dosage: EVERY 28 DAYS
     Route: 065
     Dates: start: 20170918

REACTIONS (2)
  - Incorrect dose administered [Unknown]
  - Inappropriate schedule of drug administration [Unknown]

NARRATIVE: CASE EVENT DATE: 20170918
